FAERS Safety Report 12029078 (Version 1)
Quarter: 2016Q1

REPORT INFORMATION
  Report Type: Report from Study
  Country: US (occurrence: US)
  Receive Date: 20160207
  Receipt Date: 20160207
  Transmission Date: 20160526
  Serious: No
  Sender: FDA-Public Use
  Company Number: US-ABBVIE-15K-163-1500828-00

PATIENT
  Age: 35 Year
  Sex: Male

DRUGS (2)
  1. HUMIRA [Suspect]
     Active Substance: ADALIMUMAB
     Route: 058
     Dates: start: 20151110, end: 20151110
  2. HUMIRA [Suspect]
     Active Substance: ADALIMUMAB
     Indication: CROHN^S DISEASE
     Dosage: ONE AND A HALF SHOTS
     Route: 058
     Dates: start: 20151109, end: 20151109

REACTIONS (3)
  - Loss of consciousness [Recovered/Resolved]
  - Feeling abnormal [Unknown]
  - Anxiety [Unknown]

NARRATIVE: CASE EVENT DATE: 20151109
